FAERS Safety Report 22534687 (Version 2)
Quarter: 2023Q2

REPORT INFORMATION
  Report Type: Spontaneous
  Country: US (occurrence: US)
  Receive Date: 20230608
  Receipt Date: 20230616
  Transmission Date: 20230721
  Serious: Yes (Hospitalization, Other)
  Sender: FDA-Public Use
  Company Number: US-009507513-2306USA000531

PATIENT
  Sex: Male
  Weight: 82.6 kg

DRUGS (5)
  1. KEYTRUDA [Suspect]
     Active Substance: PEMBROLIZUMAB
     Indication: Clear cell renal cell carcinoma
     Dosage: 200 MG, EVERY 3 WEEKS (Q3W), VIA INFUSION
     Dates: start: 20220914
  2. AMOXICILLIN [Suspect]
     Active Substance: AMOXICILLIN
     Dosage: UNK
  3. AMLODIPINE [Concomitant]
     Active Substance: AMLODIPINE BESYLATE
     Indication: Hypertension
     Dosage: UNK
  4. VITAMIN D3 [Concomitant]
     Active Substance: CHOLECALCIFEROL
     Dosage: 5000 UNITS DAILY
     Route: 048
  5. LEVOCETIRIZINE DIHYDROCHLORIDE [Concomitant]
     Active Substance: LEVOCETIRIZINE DIHYDROCHLORIDE
     Indication: Seasonal allergy
     Dosage: 24 DAILY

REACTIONS (47)
  - Malnutrition [Unknown]
  - Hypophagia [Unknown]
  - Weight decreased [Unknown]
  - Hyponatraemia [Recovering/Resolving]
  - Fatigue [Unknown]
  - Asthenia [Unknown]
  - Adrenal insufficiency [Unknown]
  - Adrenal disorder [Recovering/Resolving]
  - Skin burning sensation [Unknown]
  - Gait disturbance [Unknown]
  - Chromaturia [Unknown]
  - Hypotension [Recovered/Resolved]
  - Hypochloraemia [Recovered/Resolved]
  - Blood bicarbonate decreased [Recovered/Resolved]
  - Hypercoagulation [Unknown]
  - Somnolence [Unknown]
  - Urine ketone body present [Unknown]
  - White blood cells urine positive [Unknown]
  - Urinary casts present [Unknown]
  - Nasal septum deviation [Unknown]
  - Nasal polyps [Unknown]
  - Eosinophil percentage increased [Recovered/Resolved]
  - Eosinophil count increased [Recovered/Resolved]
  - Basophil percentage increased [Unknown]
  - Blood osmolarity decreased [Unknown]
  - Skin warm [Unknown]
  - Basophil count increased [Unknown]
  - Reticulocyte percentage increased [Unknown]
  - Blood albumin decreased [Unknown]
  - Aspartate aminotransferase decreased [Unknown]
  - Total cholesterol/HDL ratio increased [Unknown]
  - High density lipoprotein decreased [Unknown]
  - Blood magnesium decreased [Unknown]
  - Neutrophil percentage decreased [Unknown]
  - Red blood cell count decreased [Unknown]
  - Cortisol decreased [Unknown]
  - Pain [Unknown]
  - Abdominal discomfort [Unknown]
  - Exfoliative rash [Unknown]
  - Drug hypersensitivity [Unknown]
  - Vomiting [Recovered/Resolved]
  - Rash erythematous [Unknown]
  - Anaemia [Unknown]
  - Decreased appetite [Unknown]
  - Chills [Unknown]
  - Dyspnoea [Recovered/Resolved]
  - Product dose omission issue [Unknown]

NARRATIVE: CASE EVENT DATE: 20230101
